FAERS Safety Report 10263815 (Version 1)
Quarter: 2014Q2

REPORT INFORMATION
  Report Type: Other
  Country: DE (occurrence: DE)
  Receive Date: 20140627
  Receipt Date: 20140627
  Transmission Date: 20141212
  Serious: Yes (Life-Threatening)
  Sender: FDA-Public Use
  Company Number: DE-LUPIN PHARMACEUTICALS INC.-E2B_00000937

PATIENT
  Age: 53 Year
  Sex: Male
  Weight: 92 kg

DRUGS (2)
  1. SIMVASTATIN [Suspect]
     Indication: HYPERLIPIDAEMIA
     Route: 048
  2. INEGY [Suspect]
     Indication: HYPERLIPIDAEMIA
     Dosage: UNKNOWN
     Route: 048

REACTIONS (2)
  - Renal failure acute [Recovering/Resolving]
  - Rhabdomyolysis [Recovering/Resolving]
